FAERS Safety Report 4383257-5 (Version None)
Quarter: 2004Q2

REPORT INFORMATION
  Report Type: 
  Country: None (occurrence: None)
  Receive Date: 20040618
  Receipt Date: 20040604
  Transmission Date: 20050107
  Serious: Yes (Hospitalization)
  Sender: FDA-Public Use
  Company Number: JP-JNJFOC-20040503808

PATIENT
  Age: 45 Year
  Sex: Male
  Weight: 67 kg

DRUGS (13)
  1. REMICADE [Suspect]
     Dosage: 3 MG/KG, 1 IN 1 AS NECESSARY, INTRAVENOUS DRIP
     Route: 041
     Dates: start: 20040224, end: 20040224
  2. REMICADE [Suspect]
     Dosage: 3 MG/KG, 1 IN 1 AS NECESSARY, INTRAVENOUS DRIP
     Route: 041
     Dates: start: 20040309, end: 20040309
  3. REMICADE [Suspect]
     Dosage: 3 MG/KG, 1 IN 1 AS NECESSARY, INTRAVENOUS DRIP
     Route: 041
     Dates: start: 20040406, end: 20040406
  4. METHOTREXATE [Concomitant]
  5. PREDNISOLONE [Concomitant]
  6. AZULFIDINE [Concomitant]
  7. VOLTAREN [Concomitant]
  8. HYPEN (ETODOLAC) [Concomitant]
  9. LOXONIN (LOXOPROFEN SODIUIM) [Concomitant]
  10. VOLTAREN [Concomitant]
  11. FOLIAMIN (FOLIC ACID) [Concomitant]
  12. SELBEX (TEPRENONE) [Concomitant]
  13. FAMOTIDINE [Concomitant]

REACTIONS (7)
  - ATELECTASIS [None]
  - ERYTHEMA [None]
  - HAEMOTHORAX [None]
  - HEPATITIS B [None]
  - PLEURAL EFFUSION [None]
  - PNEUMONIA [None]
  - TUBERCULOUS PLEURISY [None]
